FAERS Safety Report 7680281-1 (Version None)
Quarter: 2011Q3

REPORT INFORMATION
  Report Type: 
  Country: None (occurrence: None)
  Receive Date: 20110812
  Receipt Date: 20110810
  Transmission Date: 20111222
  Serious: Yes (Death)
  Sender: FDA-Public Use
  Company Number: US-SANOFI-AVENTIS-2011SA051279

PATIENT
  Age: 69 Year
  Sex: Male

DRUGS (5)
  1. BEVACIZUMAB [Suspect]
     Route: 042
     Dates: start: 20110426, end: 20110705
  2. OXALIPLATIN [Suspect]
     Route: 042
     Dates: start: 20110426, end: 20110705
  3. EVEROLIMUS [Suspect]
     Route: 048
     Dates: start: 20110426, end: 20110725
  4. DEXAMETHASONE [Concomitant]
  5. CAPECITABINE [Suspect]
     Dosage: DOSE AND FREQUENCY: 1000 MG IN THE MORNING AND 1500 MG IN NIGHT (TWICE DAILY)
     Route: 048
     Dates: start: 20110426, end: 20110719

REACTIONS (1)
  - GASTROINTESTINAL HAEMORRHAGE [None]
